FAERS Safety Report 15741738 (Version 9)
Quarter: 2019Q3

REPORT INFORMATION
  Report Type: Report from Study
  Country: US (occurrence: US)
  Receive Date: 20181219
  Receipt Date: 20190930
  Transmission Date: 20191004
  Serious: Yes (Death, Hospitalization)
  Sender: FDA-Public Use
  Company Number: US-ACTELION-A-US2018-177459

PATIENT
  Age: 63 Year
  Sex: Male

DRUGS (23)
  1. ALDACTONE [Concomitant]
     Active Substance: SPIRONOLACTONE
     Dosage: 25 MG, UNK
     Dates: start: 20160603
  2. UPTRAVI [Suspect]
     Active Substance: SELEXIPAG
     Indication: PULMONARY ARTERIAL HYPERTENSION
     Dosage: 1400 MCG, BID
     Route: 048
     Dates: start: 20170726, end: 20190904
  3. UPTRAVI [Suspect]
     Active Substance: SELEXIPAG
     Dosage: UNK
     Route: 048
  4. NOVOLOG [Concomitant]
     Active Substance: INSULIN ASPART
     Dosage: 70/30
     Dates: start: 20160502
  5. TAMSULOSIN [Concomitant]
     Active Substance: TAMSULOSIN
     Dosage: 0.4 MG, UNK
     Dates: start: 20171102
  6. XARELTO [Concomitant]
     Active Substance: RIVAROXABAN
  7. VITAMIN B COMPLEX [Concomitant]
     Active Substance: CYANOCOBALAMIN\DEXPANTHENOL\NIACINAMIDE\PYRIDOXINE HYDROCHLORIDE\RIBOFLAVIN 5^-PHOSPHATE SODIUM\THIAMINE HYDROCHLORIDE\VITAMIN B COMPLEX
     Dosage: UNK
     Dates: start: 20160502
  8. COLACE [Concomitant]
     Active Substance: DOCUSATE SODIUM
     Dosage: 100 MG, UNK
     Dates: start: 20180131
  9. VITAMIN C [Concomitant]
     Active Substance: ASCORBIC ACID
     Dosage: 60 MG, UNK
     Dates: start: 20160502
  10. FINASTERIDE. [Concomitant]
     Active Substance: FINASTERIDE
     Dosage: 5 MG, UNK
     Dates: start: 20171102
  11. MIRALAX [Concomitant]
     Active Substance: POLYETHYLENE GLYCOL 3350
     Dosage: UNK
     Dates: start: 20180131
  12. UPTRAVI [Suspect]
     Active Substance: SELEXIPAG
     Dosage: UNK
     Route: 048
     Dates: start: 20160511
  13. ATORVASTATIN [Concomitant]
     Active Substance: ATORVASTATIN
     Dosage: 10 MG, UNK
     Dates: start: 20170327
  14. CARVEDILOL. [Concomitant]
     Active Substance: CARVEDILOL
     Dosage: 12.5 MG, UNK
     Dates: start: 20180516
  15. NEURONTIN [Concomitant]
     Active Substance: GABAPENTIN
     Dosage: 600 MG, UNK
     Dates: start: 20160502
  16. BUMETANIDE. [Concomitant]
     Active Substance: BUMETANIDE
     Dosage: 1 MG, UNK
     Dates: start: 20170726
  17. UPTRAVI [Suspect]
     Active Substance: SELEXIPAG
     Dosage: 1200 MCG, BID
     Route: 048
     Dates: start: 20170726
  18. OPSUMIT [Suspect]
     Active Substance: MACITENTAN
     Indication: PULMONARY ARTERIAL HYPERTENSION
     Dosage: 10 MG, QD
     Route: 048
     Dates: start: 20151225
  19. UPTRAVI [Suspect]
     Active Substance: SELEXIPAG
     Dosage: 1400 MCG, UNK
     Route: 048
  20. ADEMPAS [Concomitant]
     Active Substance: RIOCIGUAT
     Dosage: 1.5 MG, UNK
     Dates: start: 20180131
  21. SPIRIVA [Concomitant]
     Active Substance: TIOTROPIUM BROMIDE MONOHYDRATE
     Dosage: 2.5 UNK, UNK
     Dates: start: 20170726
  22. TRAZODONE [Concomitant]
     Active Substance: TRAZODONE HYDROCHLORIDE
     Dosage: 50 MG, UNK
     Dates: start: 20160502
  23. SYMBICORT [Concomitant]
     Active Substance: BUDESONIDE\FORMOTEROL FUMARATE DIHYDRATE
     Dosage: 160-4.5 AER
     Dates: start: 20160502

REACTIONS (18)
  - Cardiac ablation [Recovered/Resolved]
  - Pain [Unknown]
  - Fluid overload [Recovered/Resolved]
  - Cardiac failure congestive [Not Recovered/Not Resolved]
  - Unevaluable event [Unknown]
  - Headache [Not Recovered/Not Resolved]
  - Death [Fatal]
  - Myalgia [Recovering/Resolving]
  - Oedema [Not Recovered/Not Resolved]
  - Cardioversion [Not Recovered/Not Resolved]
  - Dizziness [Unknown]
  - Pulmonary oedema [Unknown]
  - Neuralgia [Recovered/Resolved]
  - Pericardial effusion [Not Recovered/Not Resolved]
  - Vertigo [Unknown]
  - Dyspnoea [Not Recovered/Not Resolved]
  - Swelling [Unknown]
  - Pain in jaw [Recovering/Resolving]

NARRATIVE: CASE EVENT DATE: 20180710
